FAERS Safety Report 14375357 (Version 1)
Quarter: 2018Q1

REPORT INFORMATION
  Report Type: Spontaneous
  Country: US (occurrence: US)
  Receive Date: 20180110
  Receipt Date: 20180110
  Transmission Date: 20180509
  Serious: No
  Sender: FDA-Public Use
  Company Number: None

PATIENT
  Age: 60 Year
  Sex: Female
  Weight: 85.05 kg

DRUGS (1)
  1. DULOXETINE DR 30 MG [Suspect]
     Active Substance: DULOXETINE
     Indication: NEURALGIA
     Dosage: ?          QUANTITY:1 TABLET(S);?
     Route: 048
     Dates: start: 20180108, end: 20180109

REACTIONS (4)
  - Headache [None]
  - Halo vision [None]
  - Metamorphopsia [None]
  - Vision blurred [None]

NARRATIVE: CASE EVENT DATE: 20180108
